FAERS Safety Report 4650505-3 (Version None)
Quarter: 2005Q2

REPORT INFORMATION
  Report Type: 
  Country: None (occurrence: None)
  Receive Date: 20050502
  Receipt Date: 20050204
  Transmission Date: 20051028
  Serious: Yes (Other)
  Sender: FDA-Public Use
  Company Number: US-MERCK-0502USA00774

PATIENT
  Sex: Male
  Weight: 118 kg

DRUGS (7)
  1. VIOXX [Suspect]
     Indication: RHEUMATOID ARTHRITIS
     Route: 048
     Dates: start: 20000621, end: 20041001
  2. VIOXX [Suspect]
     Route: 048
     Dates: start: 20000621
  3. VIOXX [Suspect]
     Indication: OSTEOARTHRITIS
     Route: 048
     Dates: start: 20000621, end: 20041001
  4. VIOXX [Suspect]
     Route: 048
     Dates: start: 20000621
  5. ACCUPRIL [Concomitant]
     Indication: HYPERTENSION
     Route: 048
     Dates: start: 19980501, end: 19990601
  6. VENTOLIN [Concomitant]
     Indication: ASTHMA
     Route: 065
     Dates: start: 19990501
  7. ASPIRIN [Concomitant]
     Route: 048

REACTIONS (11)
  - APPENDIX DISORDER [None]
  - BACK DISORDER [None]
  - CARDIAC DISORDER [None]
  - CAROTID ARTERY STENOSIS [None]
  - DEPRESSION [None]
  - DYSPEPSIA [None]
  - GASTRIC DISORDER [None]
  - HEPATITIS B [None]
  - MYOCARDIAL INFARCTION [None]
  - PANIC DISORDER [None]
  - SWELLING [None]
